FAERS Safety Report 6696682-4 (Version None)
Quarter: 2010Q2

REPORT INFORMATION
  Report Type: 
  Country: None (occurrence: None)
  Receive Date: 20100426
  Receipt Date: 20100412
  Transmission Date: 20101027
  Serious: Yes (Other)
  Sender: FDA-Public Use
  Company Number: GB-SOLVAY-00210002080

PATIENT
  Age: 68 Year
  Sex: Female

DRUGS (3)
  1. EZETROL [Suspect]
     Indication: DRUG USE FOR UNKNOWN INDICATION
     Dosage: DAILY DOSE: 10 MILLIGRAM(S)
     Route: 065
     Dates: start: 20060101, end: 20100101
  2. AMIAS [Suspect]
     Indication: DRUG USE FOR UNKNOWN INDICATION
     Dosage: DAILY DOSE: 4 MILLIGRAM(S)
     Route: 065
     Dates: start: 20060101, end: 20100101
  3. PERINDOPRIL 8 MG NOS [Suspect]
     Indication: DRUG USE FOR UNKNOWN INDICATION
     Dosage: DAILY DOSE:  UNKNOWN
     Route: 065
     Dates: start: 20060101, end: 20100101

REACTIONS (10)
  - AGEUSIA [None]
  - ANOSMIA [None]
  - BULBAR PALSY [None]
  - DRY EYE [None]
  - DYSPHAGIA [None]
  - GLOSSODYNIA [None]
  - LIP SWELLING [None]
  - SKIN FISSURES [None]
  - SPEECH DISORDER [None]
  - SWOLLEN TONGUE [None]
